FAERS Safety Report 9991943 (Version 2)
Quarter: 2014Q2

REPORT INFORMATION
  Report Type: Spontaneous
  Country: US (occurrence: US)
  Receive Date: 20140310
  Receipt Date: 20140610
  Transmission Date: 20141212
  Serious: No
  Sender: FDA-Public Use
  Company Number: US-VIIV HEALTHCARE LIMITED-A1060490A

PATIENT
  Age: 28 Year
  Sex: Male

DRUGS (1)
  1. TIVICAY [Suspect]
     Indication: HIV INFECTION
     Route: 048

REACTIONS (2)
  - Blood creatine phosphokinase increased [Unknown]
  - Creatinine renal clearance [Unknown]
